FAERS Safety Report 16696558 (Version 1)
Quarter: 2019Q3

REPORT INFORMATION
  Report Type: Spontaneous
  Country: US (occurrence: US)
  Receive Date: 20190813
  Receipt Date: 20190813
  Transmission Date: 20191004
  Serious: No
  Sender: FDA-Public Use
  Company Number: US-MYLANLABS-2019M1071873

PATIENT
  Sex: Male
  Weight: 89 kg

DRUGS (3)
  1. DICLOFENAC POTASSIUM TABLETS, USP [Suspect]
     Active Substance: DICLOFENAC POTASSIUM
     Indication: STENOSIS
  2. DICLOFENAC POTASSIUM TABLETS, USP [Suspect]
     Active Substance: DICLOFENAC POTASSIUM
     Indication: PAIN
     Dosage: UNK
     Route: 048
  3. DICLOFENAC POTASSIUM TABLETS, USP [Suspect]
     Active Substance: DICLOFENAC POTASSIUM
     Indication: INFLAMMATION

REACTIONS (1)
  - Drug ineffective [Not Recovered/Not Resolved]
